FAERS Safety Report 9731515 (Version 3)
Quarter: 2013Q3

REPORT INFORMATION
  Report Type: Spontaneous
  Country: JP (occurrence: None)
  Receive Date: 20130705
  Receipt Date: 20130828
  Transmission Date: 20140515
  Serious: Yes (Hospitalization)
  Sender: FDA-Public Use
  Company Number: AE-SPE-2013-020

PATIENT
  Age: 1 Year
  Sex: Male

DRUGS (1)
  1. MEIACT MS FINE GRANULES (CEFDITOREN PIVOXIL) [Suspect]
     Dosage: P.O.
     Route: 048
     Dates: start: 20130223

REACTIONS (5)
  - Drug eruption [None]
  - Pyrexia [None]
  - Erythema [None]
  - Erythema multiforme [None]
  - Insomnia [None]
